FAERS Safety Report 9840071 (Version 1)
Quarter: 2013Q4

REPORT INFORMATION
  Report Type: Spontaneous
  Country: US (occurrence: None)
  Receive Date: 20131211
  Receipt Date: 20131211
  Transmission Date: 20140711
  Serious: No
  Sender: FDA-Public Use
  Company Number: ALL1-2012-03369

PATIENT
  Age: 32 Year
  Sex: Female

DRUGS (2)
  1. FIRAZYR [Suspect]
     Indication: HEREDITARY ANGIOEDEMA
     Dosage: 30 MG, UKNOWN SUBCUTANEOUS
     Route: 058
     Dates: start: 20120705
  2. CINRYZE(COMPLEMENT C 1 ESTERASE INHIBITOR) [Concomitant]

REACTIONS (3)
  - Injection site vesicles [None]
  - Injection site pain [None]
  - Injection site erythema [None]
